FAERS Safety Report 20306886 (Version 1)
Quarter: 2022Q1

REPORT INFORMATION
  Report Type: Spontaneous
  Country: US (occurrence: US)
  Receive Date: 20220106
  Receipt Date: 20220106
  Transmission Date: 20220423
  Serious: No
  Sender: FDA-Public Use
  Company Number: US-ALKEM LABORATORIES LIMITED-US-ALKEM-2021-07076

PATIENT
  Age: 33 Year
  Sex: Male

DRUGS (2)
  1. IBUPROFEN [Suspect]
     Active Substance: IBUPROFEN
     Indication: Product used for unknown indication
     Route: 065
  2. ACETAMINOPHEN [Suspect]
     Active Substance: ACETAMINOPHEN
     Indication: Product used for unknown indication
     Dosage: UNK (325 MG WITH 30-MIN INCREMENTS BETWEEN THE 1% AND 10% DOSES, AND 2 HOURS AFTER THE 89% DOSE)
     Route: 048

REACTIONS (2)
  - Urticaria papular [Recovered/Resolved]
  - Rash pruritic [Recovered/Resolved]
